FAERS Safety Report 19846902 (Version 1)
Quarter: 2021Q3

REPORT INFORMATION
  Report Type: Spontaneous
  Country: US (occurrence: US)
  Receive Date: 20210917
  Receipt Date: 20210917
  Transmission Date: 20211014
  Serious: Yes (Hospitalization)
  Sender: FDA-Public Use
  Company Number: None

PATIENT

DRUGS (1)
  1. STELARA [Suspect]
     Active Substance: USTEKINUMAB
     Route: 041

REACTIONS (3)
  - Chest discomfort [None]
  - Cough [None]
  - Anaphylactic reaction [None]

NARRATIVE: CASE EVENT DATE: 20210917
